FAERS Safety Report 16956989 (Version 1)
Quarter: 2019Q4

REPORT INFORMATION
  Report Type: Spontaneous
  Country: IT (occurrence: IT)
  Receive Date: 20191024
  Receipt Date: 20191024
  Transmission Date: 20200122
  Serious: Yes (Disabling, Other)
  Sender: FDA-Public Use
  Company Number: IT-SA-2019SA290447

PATIENT
  Sex: Female

DRUGS (1)
  1. LEMTRADA [Suspect]
     Active Substance: ALEMTUZUMAB
     Indication: MULTIPLE SCLEROSIS
     Dosage: UNK
     Route: 041
     Dates: start: 201807

REACTIONS (4)
  - Radiculopathy [Unknown]
  - Expanded disability status scale score increased [Unknown]
  - Motor dysfunction [Unknown]
  - Antineutrophil cytoplasmic antibody positive [Unknown]
